FAERS Safety Report 23118735 (Version 1)
Quarter: 2023Q4

REPORT INFORMATION
  Report Type: Spontaneous
  Country: NL (occurrence: NL)
  Receive Date: 20231028
  Receipt Date: 20231028
  Transmission Date: 20240109
  Serious: Yes (Other)
  Sender: FDA-Public Use
  Company Number: None

PATIENT
  Age: 68 Year
  Sex: Male
  Weight: 87 kg

DRUGS (4)
  1. DULOXETINE [Suspect]
     Active Substance: DULOXETINE
     Indication: Pain
     Dosage: 30 MILLIGRAM DAILY; 1X DAILY , DULOXETINE CAPSULE MSR 30MG / BRAND NAME NOT SPECIFIED
     Dates: start: 20230804, end: 20230825
  2. AMITRIPTYLINE HYDROCHLORIDE [Concomitant]
     Active Substance: AMITRIPTYLINE HYDROCHLORIDE
     Indication: Product used for unknown indication
     Dosage: 10 MG, AMITRIPTYLINE HCL TABLET 10MG / BRAND NAME NOT SPECIFIED
  3. PRAVASTATIN [Concomitant]
     Active Substance: PRAVASTATIN
     Indication: Product used for unknown indication
     Dosage: 40 MG (MILLIGRAM), PRAVASTATINE TABLET 40MG / BRAND NAME NOT SPECIFIED
  4. LOSARTAN [Concomitant]
     Active Substance: LOSARTAN
     Indication: Product used for unknown indication
     Dosage: 25 MG, LOSARTAN TABLET FO 25MG / BRAND NAME NOT SPECIFIED

REACTIONS (1)
  - Vitreous detachment [Not Recovered/Not Resolved]
